FAERS Safety Report 25905907 (Version 1)
Quarter: 2025Q4

REPORT INFORMATION
  Report Type: Spontaneous
  Country: KR (occurrence: KR)
  Receive Date: 20251010
  Receipt Date: 20251010
  Transmission Date: 20260118
  Serious: Yes (Life-Threatening, Hospitalization)
  Sender: MACLEODS
  Company Number: KR-MACLEODS PHARMA-MAC2025055670

PATIENT

DRUGS (1)
  1. VARENICLINE [Suspect]
     Active Substance: VARENICLINE
     Indication: Smoking cessation therapy
     Route: 065

REACTIONS (2)
  - Pulmonary infarction [Unknown]
  - Pulmonary embolism [Recovered/Resolved]
